FAERS Safety Report 5148028-0 (Version None)
Quarter: 2006Q4

REPORT INFORMATION
  Report Type: 
  Country: None (occurrence: None)
  Receive Date: 20061110
  Receipt Date: 20060908
  Transmission Date: 20070319
  Serious: Yes (Hospitalization, Other)
  Sender: FDA-Public Use
  Company Number: BE-GLAXOSMITHKLINE-B0437744A

PATIENT
  Age: 26 Year
  Sex: Female

DRUGS (3)
  1. MALARONE [Suspect]
     Indication: MALARIA PROPHYLAXIS
     Dosage: 1TAB PER DAY
     Route: 048
     Dates: start: 20060715, end: 20060723
  2. ANTIBIOTIC [Concomitant]
     Dates: start: 20060716
  3. AUGMENTIN '125' [Concomitant]
     Indication: OTITIS MEDIA
     Dosage: 875MG THREE TIMES PER DAY
     Route: 048
     Dates: start: 20060716, end: 20060722

REACTIONS (15)
  - DIARRHOEA [None]
  - DRUG INEFFECTIVE [None]
  - EAR DISORDER [None]
  - EAR INFECTION [None]
  - EATING DISORDER [None]
  - FATIGUE [None]
  - GASTROENTERITIS [None]
  - HEADACHE [None]
  - HYPERSOMNIA [None]
  - INFLAMMATION [None]
  - ORAL INTAKE REDUCED [None]
  - PLASMODIUM FALCIPARUM INFECTION [None]
  - PYREXIA [None]
  - SOMNOLENCE [None]
  - VOMITING [None]
